FAERS Safety Report 9896286 (Version 1)
Quarter: 2014Q1

REPORT INFORMATION
  Report Type: Spontaneous
  Country: US (occurrence: US)
  Receive Date: 20140213
  Receipt Date: 20140213
  Transmission Date: 20141002
  Serious: No
  Sender: FDA-Public Use
  Company Number: US-BRISTOL-MYERS SQUIBB COMPANY-18819292

PATIENT
  Age: 39 Year
  Sex: Female
  Weight: 92.51 kg

DRUGS (1)
  1. ABATACEPT SUBQ INJECTION 125MG/ML [Suspect]
     Indication: RHEUMATOID ARTHRITIS
     Dosage: INJECTED ORENCIA 8 TIMES?PRESCRIPTION #:92750456?STARTED 8 WEEKS AGO FROM LAST DOSE(20APR2013)
     Route: 058

REACTIONS (1)
  - Drug administration error [Unknown]
